FAERS Safety Report 16148870 (Version 1)
Quarter: 2019Q2

REPORT INFORMATION
  Report Type: Spontaneous
  Country: ES (occurrence: ES)
  Receive Date: 20190402
  Receipt Date: 20190402
  Transmission Date: 20190711
  Serious: Yes (Hospitalization, Other)
  Sender: FDA-Public Use
  Company Number: ES-PFIZER INC-2019137242

PATIENT
  Age: 78 Year
  Sex: Female

DRUGS (6)
  1. EXFORGE HCT [Interacting]
     Active Substance: AMLODIPINE BESYLATE\HYDROCHLOROTHIAZIDE\VALSARTAN
     Indication: HYPERTENSION
     Dosage: 1 DF, 1X/DAY (EVERY 24 HOURS)
     Route: 048
     Dates: start: 201011
  2. EFFERALGAN C [Concomitant]
     Indication: PAIN
     Dosage: 1 DF, 3X/DAY, EVERY 8 HOURS
     Route: 048
  3. TOVIAZ [Suspect]
     Active Substance: FESOTERODINE FUMARATE
     Indication: HYPERTONIC BLADDER
     Dosage: 8 MG, 1X/DAY (EVERY 24 HOURS)
     Route: 048
     Dates: start: 201301, end: 2018
  4. FLUOXETINE [Interacting]
     Active Substance: FLUOXETINE HYDROCHLORIDE
     Indication: ADJUSTMENT DISORDER WITH DEPRESSED MOOD
     Dosage: 20 MG, 1X/DAY (1-0-0-0)
     Route: 048
     Dates: start: 201201, end: 2018
  5. LORAZEPAM. [Interacting]
     Active Substance: LORAZEPAM
     Indication: ADJUSTMENT DISORDER WITH DEPRESSED MOOD
     Dosage: 1 MG, 1X/DAY (0-0-0-1)
     Route: 048
     Dates: start: 201201, end: 2018
  6. DUROGESIC [Interacting]
     Active Substance: FENTANYL
     Indication: BACK PAIN
     Dosage: 1 DF, EVERY 72 HOURS
     Route: 062
     Dates: start: 201712

REACTIONS (2)
  - Drug interaction [Unknown]
  - Parotitis [Recovered/Resolved]

NARRATIVE: CASE EVENT DATE: 201808
